FAERS Safety Report 5045078-X (Version None)
Quarter: 2006Q3

REPORT INFORMATION
  Report Type: 
  Country: None (occurrence: None)
  Receive Date: 20060705
  Receipt Date: 20060613
  Transmission Date: 20061208
  Serious: Yes (Death)
  Sender: FDA-Public Use
  Company Number: US200606003566

PATIENT
  Weight: 1.2 kg

DRUGS (3)
  1. HUMULIN N [Suspect]
     Dosage: TRANSPLACENTAL
     Route: 064
     Dates: start: 20050101
  2. HUMULIN R [Suspect]
     Dosage: TRANSPLACENTAL
     Route: 064
     Dates: start: 20050101
  3. NOVOLOG [Concomitant]

REACTIONS (4)
  - DEATH NEONATAL [None]
  - DRUG EXPOSURE DURING PREGNANCY [None]
  - IMMATURE RESPIRATORY SYSTEM [None]
  - PREMATURE BABY [None]
